FAERS Safety Report 5011142-4 (Version None)
Quarter: 2006Q2

REPORT INFORMATION
  Report Type: 
  Country: None (occurrence: None)
  Receive Date: 20060523
  Receipt Date: 20060510
  Transmission Date: 20061013
  Serious: Yes (Hospitalization)
  Sender: FDA-Public Use
  Company Number: CERZ-11124

PATIENT
  Age: 3 Year
  Sex: Female
  Weight: 15 kg

DRUGS (27)
  1. CEREZYME [Suspect]
     Indication: GAUCHER'S DISEASE
     Dosage: 1000 UNITS Q2WKS IV
     Route: 042
     Dates: start: 20030729
  2. SODIUM CROMOGLICATE [Concomitant]
  3. DIAZEPAM [Concomitant]
  4. CYPROHEPTADINE HCL [Concomitant]
  5. DANTROLENE SODIUM [Concomitant]
  6. TIZANIDINE HYDROCHLORIDE [Concomitant]
  7. TRICHLORETHYL PHOSPHATE SODIUM [Concomitant]
  8. BACLOFEN [Concomitant]
  9. BIFIDOBACTERIUM [Concomitant]
  10. FAMOTIDINE [Concomitant]
  11. PHENOBARBITAL [Concomitant]
  12. MELATONIN [Concomitant]
  13. MOSAPRIDE CITRATE [Concomitant]
  14. TPN [Concomitant]
  15. SODIUM, POTASSIUM, MAGNESIUM COMBINED DRUG [Concomitant]
  16. PARENTERAL NUTRITION 9 [Concomitant]
  17. BORIC ACID AND INORGANIC SALTS COMBINED DRUG [Concomitant]
  18. BISACODYL [Concomitant]
  19. HYDROCORTISONE [Concomitant]
  20. HEPARINOID [Concomitant]
  21. CARBOCISTEINE [Concomitant]
  22. HYALURONATE SODIUM [Concomitant]
  23. CEFTAZIDIME [Concomitant]
  24. PANIPENEM/BETAMIPRON [Concomitant]
  25. PROCATEROL HCL [Concomitant]
  26. BROMHEXINE HYDROCHLORIDE [Concomitant]
  27. HYDROXYZINE PAMOATE [Concomitant]

REACTIONS (3)
  - ARTHRITIS [None]
  - OSTEOMYELITIS [None]
  - PURULENCE [None]
